FAERS Safety Report 7247543-3 (Version None)
Quarter: 2011Q1

REPORT INFORMATION
  Report Type: 
  Country: None (occurrence: None)
  Receive Date: 20110127
  Receipt Date: 20110120
  Transmission Date: 20110831
  Serious: Yes (Hospitalization)
  Sender: FDA-Public Use
  Company Number: PHHY2010US89516

PATIENT
  Sex: Female

DRUGS (8)
  1. ALBUTEROL [Concomitant]
  2. ZOMETA [Suspect]
     Indication: OSTEOPOROSIS
     Dosage: 5 MG ONCE PER YEAR
     Route: 042
     Dates: start: 20100213
  3. MUCINEX [Concomitant]
     Dosage: UNK
     Dates: start: 20070101
  4. CALCIUM [Concomitant]
     Dosage: UNK
  5. VITAMIN D [Concomitant]
     Dosage: UNK
  6. PREVACID [Concomitant]
     Dosage: UNK
     Dates: start: 20080101
  7. TERIPARATIDE [Concomitant]
  8. ERGOCALCIFEROL [Concomitant]
     Dosage: UNK
     Dates: start: 19950101

REACTIONS (3)
  - RESPIRATORY DISTRESS [None]
  - ASTHMA [None]
  - BRONCHITIS [None]
